FAERS Safety Report 6295689 (Version 2)
Quarter: 2017Q3

REPORT INFORMATION
  Report Type: Spontaneous
  Country: US (occurrence: US)
  Receive Date: 20070424
  Receipt Date: 20170926
  Transmission Date: 20171128
  Serious: Yes (Hospitalization, Other)
  Sender: FDA-Public Use
  Company Number: US-PFIZER INC-2007019627

PATIENT
  Age: 58 Year
  Sex: Male
  Weight: 91 kg

DRUGS (3)
  1. BEXTRA [Suspect]
     Active Substance: VALDECOXIB
     Indication: MUSCLE SPASMS
     Dosage: UNK
     Dates: start: 20030723
  2. BEXTRA [Suspect]
     Active Substance: VALDECOXIB
     Indication: PAIN
     Dosage: UNK
     Dates: start: 200308
  3. CELEBREX [Suspect]
     Active Substance: CELECOXIB
     Indication: PAIN
     Dosage: UNK

REACTIONS (3)
  - Myocardial infarction [Unknown]
  - Cardiovascular disorder [Unknown]
  - Ischaemic stroke [Unknown]

NARRATIVE: CASE EVENT DATE: 20040826
